FAERS Safety Report 9006412 (Version 1)
Quarter: 2013Q1

REPORT INFORMATION
  Report Type: Spontaneous
  Country: IT (occurrence: IT)
  Receive Date: 20130110
  Receipt Date: 20130110
  Transmission Date: 20140127
  Serious: Yes (Hospitalization)
  Sender: FDA-Public Use
  Company Number: IT-BAYER-2013-001819

PATIENT
  Age: 74 Year
  Sex: Female

DRUGS (12)
  1. CARDIOASPIRIN [Suspect]
     Indication: PROPHYLAXIS
     Dosage: 100 MG, QD
     Route: 048
     Dates: start: 20120918, end: 20121212
  2. PLAVIX [Interacting]
     Indication: PROPHYLAXIS
     Dosage: DAILY DOSE 75 MG
     Route: 048
     Dates: start: 20120918, end: 20121112
  3. PLAVIX [Interacting]
     Indication: PROPHYLAXIS
     Dosage: UNK
     Route: 048
  4. COUMADIN [Interacting]
     Indication: PROPHYLAXIS
     Dosage: 5 MG, PRN
     Route: 048
     Dates: start: 20100401, end: 20121112
  5. ENALAPRIL [Concomitant]
     Dosage: DAILY DOSE 10 MG
     Route: 048
  6. FUROSEMIDE [Concomitant]
     Dosage: DAILY DOSE 25 MG
     Route: 048
  7. BISOPROLOL [Concomitant]
     Dosage: DAILY DOSE 2.5 MG
     Route: 048
  8. SPIRONOLACTONE [Concomitant]
     Dosage: DAILY DOSE 25 MG
     Route: 048
  9. ZOLPIDEM [Concomitant]
     Dosage: DAILY DOSE 1 DF
     Route: 048
  10. EUTIROX [Concomitant]
     Dosage: DAILY DOSE 100 ?G
     Route: 048
  11. HUMALOG [Concomitant]
     Dosage: DAILY DOSE 20 IU
     Route: 058
  12. LEVEMIR [Concomitant]
     Dosage: DAILY DOSE 7 IU
     Route: 058

REACTIONS (4)
  - Gastrointestinal haemorrhage [Unknown]
  - International normalised ratio increased [Unknown]
  - Anaemia [Unknown]
  - Drug interaction [Unknown]
